FAERS Safety Report 8540167-7 (Version None)
Quarter: 2012Q3

REPORT INFORMATION
  Report Type: 
  Country: None (occurrence: None)
  Receive Date: 20120726
  Receipt Date: 20120719
  Transmission Date: 20120928
  Serious: Yes (Hospitalization)
  Sender: FDA-Public Use
  Company Number: JP-ROCHE-1031197

PATIENT
  Age: 77 Year
  Sex: Male

DRUGS (13)
  1. LUCENTIS [Suspect]
     Dates: start: 20110607
  2. PLETAL [Concomitant]
  3. OPALMON [Concomitant]
  4. LUCENTIS [Suspect]
     Dates: start: 20110510
  5. SIGMART [Concomitant]
  6. ALINAMIN F [Concomitant]
  7. LEVOFLOXACIN [Concomitant]
     Dates: start: 20110301, end: 20110601
  8. CHOLEBRINE [Concomitant]
  9. REBAMIPIDE [Concomitant]
  10. LUCENTIS [Suspect]
     Indication: AGE-RELATED MACULAR DEGENERATION
     Route: 050
     Dates: start: 20110412
  11. LUCENTIS [Suspect]
     Dates: start: 20111129
  12. METHYLCOBALAMIN [Concomitant]
  13. LOSARTAN POTASSIUM [Concomitant]

REACTIONS (1)
  - MYOCARDIAL INFARCTION [None]
